FAERS Safety Report 7263803-4 (Version None)
Quarter: 2011Q1

REPORT INFORMATION
  Report Type: 
  Country: None (occurrence: None)
  Receive Date: 20110130
  Receipt Date: 20101028
  Transmission Date: 20110831
  Serious: No
  Sender: FDA-Public Use
  Company Number: US-ABBOTT-10P-163-0682370-00

PATIENT
  Sex: Male
  Weight: 158.9 kg

DRUGS (4)
  1. HUMIRA [Suspect]
     Indication: CROHN'S DISEASE
     Dates: start: 20090201, end: 20100301
  2. HUMIRA [Suspect]
     Dates: start: 20100301
  3. MONOPRIL [Concomitant]
     Indication: HYPERTENSION
  4. M.V.I. [Concomitant]
     Indication: PRODUCT USED FOR UNKNOWN INDICATION

REACTIONS (2)
  - FREQUENT BOWEL MOVEMENTS [None]
  - DRUG EFFECT DECREASED [None]
